FAERS Safety Report 23197577 (Version 1)
Quarter: 2023Q4

REPORT INFORMATION
  Report Type: Spontaneous
  Country: US (occurrence: None)
  Receive Date: 20231117
  Receipt Date: 20231117
  Transmission Date: 20240109
  Serious: Yes (Life-Threatening, Hospitalization)
  Sender: FDA-Public Use
  Company Number: None

PATIENT
  Age: 91 Year
  Sex: Female

DRUGS (2)
  1. MELOXICAM [Suspect]
     Active Substance: MELOXICAM
  2. ENOXAPARIN [Suspect]
     Active Substance: ENOXAPARIN

REACTIONS (7)
  - Asthenia [None]
  - Fatigue [None]
  - Tachycardia [None]
  - Acute kidney injury [None]
  - Atrial fibrillation [None]
  - Dysphagia [None]
  - Duodenal ulcer [None]

NARRATIVE: CASE EVENT DATE: 20231011
